FAERS Safety Report 9687709 (Version 1)
Quarter: 2013Q4

REPORT INFORMATION
  Report Type: Spontaneous
  Country: US (occurrence: US)
  Receive Date: 20131114
  Receipt Date: 20131114
  Transmission Date: 20140711
  Serious: No
  Sender: FDA-Public Use
  Company Number: US-PFIZER INC-2013320882

PATIENT
  Sex: Male

DRUGS (2)
  1. ADVIL MIGRAINE [Suspect]
     Dosage: UNK
  2. ADVIL MIGRAINE [Suspect]
     Dosage: 6 CAPSULES WITHIN 4 HOURS
     Dates: start: 20131107

REACTIONS (2)
  - Overdose [Unknown]
  - Pyrexia [Unknown]
